FAERS Safety Report 4634505-5 (Version None)
Quarter: 2005Q2

REPORT INFORMATION
  Report Type: 
  Country: None (occurrence: None)
  Receive Date: 20050412
  Receipt Date: 20050329
  Transmission Date: 20051028
  Serious: Yes (Hospitalization)
  Sender: FDA-Public Use
  Company Number: CERZ-10772

PATIENT
  Age: 5 Year
  Sex: Male
  Weight: 17 kg

DRUGS (1)
  1. CEREZYME [Suspect]
     Indication: GAUCHER'S DISEASE
     Dosage: 1000 UNITS Q2WKS IV
     Route: 042
     Dates: start: 20001027

REACTIONS (41)
  - ABDOMINAL DISTENSION [None]
  - ABDOMINAL MASS [None]
  - ABDOMINAL WALL DISORDER [None]
  - ABNORMAL FAECES [None]
  - ACTINOMYCOSIS [None]
  - ALANINE AMINOTRANSFERASE INCREASED [None]
  - ASPARTATE AMINOTRANSFERASE INCREASED [None]
  - ASTHENIA [None]
  - BACTERIA STOOL IDENTIFIED [None]
  - BIOPSY LYMPH GLAND ABNORMAL [None]
  - BLOOD LACTATE DEHYDROGENASE INCREASED [None]
  - BLOOD UREA INCREASED [None]
  - BRADYKINESIA [None]
  - CARDIAC DISORDER [None]
  - COMPUTERISED TOMOGRAM ABNORMAL [None]
  - DEHYDRATION [None]
  - DEVELOPMENTAL DELAY [None]
  - DIARRHOEA [None]
  - ENTERITIS [None]
  - EYE MOVEMENT DISORDER [None]
  - FIBRIN D DIMER INCREASED [None]
  - GASTROINTESTINAL OEDEMA [None]
  - GAUCHER'S DISEASE [None]
  - GIARDIASIS [None]
  - HAEMATOCHEZIA [None]
  - INFECTION [None]
  - LUNG NEOPLASM [None]
  - LYMPHADENOPATHY [None]
  - MEDIASTINAL DISORDER [None]
  - NERVOUS SYSTEM DISORDER [None]
  - OESOPHAGEAL DISORDER [None]
  - PERITONEAL DISORDER [None]
  - PNEUMONIA [None]
  - POSTOPERATIVE ILEUS [None]
  - PROTEIN-LOSING GASTROENTEROPATHY [None]
  - PROTHROMBIN TIME SHORTENED [None]
  - RED BLOOD CELL SEDIMENTATION RATE INCREASED [None]
  - THERAPEUTIC RESPONSE DECREASED [None]
  - THROMBIN TIME PROLONGED [None]
  - URINE OUTPUT DECREASED [None]
  - VOMITING [None]
